FAERS Safety Report 8346755-5 (Version None)
Quarter: 2012Q2

REPORT INFORMATION
  Report Type: 
  Country: None (occurrence: None)
  Receive Date: 20120508
  Receipt Date: 20120508
  Transmission Date: 20120825
  Serious: No
  Sender: FDA-Public Use
  Company Number: None

PATIENT
  Age: 76 Year
  Sex: Male

DRUGS (1)
  1. ZYTIGA [Suspect]
     Indication: PROSTATE CANCER
     Dosage: 1000MG (4TABS) DAILY BY MOUTH
     Route: 048
     Dates: start: 20120307, end: 20120501

REACTIONS (4)
  - SKIN DISCOLOURATION [None]
  - ASTHENIA [None]
  - OEDEMA PERIPHERAL [None]
  - ABNORMAL DREAMS [None]
